FAERS Safety Report 8882877 (Version 2)
Quarter: 2013Q1

REPORT INFORMATION
  Report Type: Spontaneous
  Country: JP (occurrence: JP)
  Receive Date: 20121105
  Receipt Date: 20130213
  Transmission Date: 20140127
  Serious: Yes (Other)
  Sender: FDA-Public Use
  Company Number: JP-JNJFOC-20121100035

PATIENT
  Age: 23 Year
  Sex: Male
  Weight: 74 kg

DRUGS (7)
  1. REMICADE [Suspect]
     Indication: CROHN^S DISEASE
     Route: 042
     Dates: start: 20071116
  2. REMICADE [Suspect]
     Indication: CROHN^S DISEASE
     Route: 042
     Dates: start: 20071129
  3. ELENTAL [Concomitant]
     Indication: CROHN^S DISEASE
     Route: 048
  4. PENTASA [Concomitant]
     Indication: CROHN^S DISEASE
     Route: 048
  5. PREDONINE [Concomitant]
     Indication: CROHN^S DISEASE
     Route: 048
  6. IMURAN [Concomitant]
     Indication: CROHN^S DISEASE
     Route: 048
  7. MIYA-BM [Concomitant]
     Indication: CROHN^S DISEASE
     Route: 048

REACTIONS (2)
  - Hepatic steatosis [Recovering/Resolving]
  - Weight increased [Unknown]
